FAERS Safety Report 8379711-1 (Version None)
Quarter: 2012Q2

REPORT INFORMATION
  Report Type: 
  Country: None (occurrence: None)
  Receive Date: 20120523
  Receipt Date: 20120515
  Transmission Date: 20120825
  Serious: Yes (Hospitalization)
  Sender: FDA-Public Use
  Company Number: BR-ASTRAZENECA-2010SE24434

PATIENT
  Age: 28324 Day
  Sex: Female
  Weight: 67 kg

DRUGS (2)
  1. CRESTOR [Suspect]
     Indication: BLOOD CHOLESTEROL INCREASED
     Route: 048
  2. CRESTOR [Suspect]
     Route: 048

REACTIONS (3)
  - HIATUS HERNIA [None]
  - GASTRITIS [None]
  - INTENTIONAL DRUG MISUSE [None]
